FAERS Safety Report 7257953-6 (Version None)
Quarter: 2011Q1

REPORT INFORMATION
  Report Type: 
  Country: None (occurrence: None)
  Receive Date: 20110129
  Receipt Date: 20100610
  Transmission Date: 20110831
  Serious: No
  Sender: FDA-Public Use
  Company Number: US-ABBOTT-10P-163-0650699-00

PATIENT
  Sex: Female

DRUGS (8)
  1. FEXOSENADINE [Concomitant]
     Indication: HYPERSENSITIVITY
  2. DARVOCET-N 100 [Concomitant]
     Indication: PAIN
     Dosage: 1/2 TAB EVERY FOUR HOURS
  3. VYTORIN [Concomitant]
     Indication: BLOOD CHOLESTEROL INCREASED
     Dosage: 10-20MG DIALY
  4. BENICAR HCT [Concomitant]
     Indication: HYPERTENSION
     Dosage: 40-25MG DAILY
  5. AVAILNEX [Concomitant]
     Indication: HYPERSENSITIVITY
  6. GLYCOL POWDER [Concomitant]
     Indication: IRRITABLE BOWEL SYNDROME
  7. PREVACID [Concomitant]
     Indication: GASTROOESOPHAGEAL REFLUX DISEASE
  8. HUMIRA [Suspect]
     Indication: RHEUMATOID ARTHRITIS
     Dates: start: 20050101

REACTIONS (2)
  - INJECTION SITE PAIN [None]
  - INJECTION SITE URTICARIA [None]
